FAERS Safety Report 19910730 (Version 1)
Quarter: 2021Q4

REPORT INFORMATION
  Report Type: Spontaneous
  Country: CN (occurrence: CN)
  Receive Date: 20211004
  Receipt Date: 20211004
  Transmission Date: 20220304
  Serious: Yes (Hospitalization)
  Sender: FDA-Public Use
  Company Number: CN-BAXTER-2021BAX026422

PATIENT
  Age: 48 Year
  Sex: Female
  Weight: 45 kg

DRUGS (14)
  1. CYCLOPHOSPHAMIDE [Suspect]
     Active Substance: CYCLOPHOSPHAMIDE
     Indication: Burkitt^s lymphoma
     Dosage: CYCLOPHOSPHAMIDE FOR INJECTION 1.5G + 0.9% SODIUM CHLORIDE 100ML
     Route: 041
     Dates: start: 20190907, end: 20190908
  2. SODIUM CHLORIDE [Suspect]
     Active Substance: SODIUM CHLORIDE
     Indication: Medication dilution
     Dosage: CYCLOPHOSPHAMIDE FOR INJECTION 1.5G + 0.9% NS 100ML
     Route: 041
     Dates: start: 20190907, end: 20190908
  3. SODIUM CHLORIDE [Suspect]
     Active Substance: SODIUM CHLORIDE
     Dosage: VINCRISTINE SULFATE FOR INJECTION 2MG +  0.9% SODIUM CHLORIDE 100ML
     Route: 041
     Dates: start: 20190907, end: 20190914
  4. SODIUM CHLORIDE [Suspect]
     Active Substance: SODIUM CHLORIDE
     Dosage: RITUXIMAB INJECTION 100MG + 0.9% SODIUM CHLORIDE 100ML
     Route: 041
     Dates: start: 20190906, end: 20190906
  5. SODIUM CHLORIDE [Suspect]
     Active Substance: SODIUM CHLORIDE
     Dosage: RITUXIMAB INJECTION 500MG + 0.9% SODIUM CHLORIDE 100ML
     Route: 041
     Dates: start: 20190906, end: 20190906
  6. DEXTROSE [Suspect]
     Active Substance: DEXTROSE
     Indication: Medication dilution
     Dosage: DOXORUBICIN HYDROCHLORIDE LIPOSOME INJECTION 40MG + 5% GLUCOSE INJECTION 250ML
     Route: 041
     Dates: start: 20190907, end: 20190907
  7. DEXTROSE [Suspect]
     Active Substance: DEXTROSE
     Dosage: METHOTREXATE INJECTION 1G + 5% GLUCOSE 250ML
     Route: 041
     Dates: start: 20190920, end: 20190920
  8. DEXTROSE [Suspect]
     Active Substance: DEXTROSE
     Dosage: METHOTREXATE INJECTION 4G + 5% GLUCOSE 500ML
     Route: 041
     Dates: start: 20190920, end: 20190920
  9. VINCRISTINE SULFATE [Suspect]
     Active Substance: VINCRISTINE SULFATE
     Indication: Burkitt^s lymphoma
     Dosage: VINCRISTINE SULFATE INJECTION 2MG + 0.9% SODIUM CHLORIDE 100ML
     Route: 041
     Dates: start: 20190907, end: 20190914
  10. DOXORUBICIN HYDROCHLORIDE [Suspect]
     Active Substance: DOXORUBICIN HYDROCHLORIDE
     Indication: Burkitt^s lymphoma
     Dosage: DOXORUBICIN LIPOSOME INJECTION 40MG + 5% GLUCOSE 250ML
     Route: 041
     Dates: start: 20190907, end: 20190907
  11. METHOTREXATE [Suspect]
     Active Substance: METHOTREXATE
     Indication: Burkitt^s lymphoma
     Dosage: METHOTREXATE INJECTION 1G + 5% GLUCOSE 250ML
     Route: 041
     Dates: start: 20190920, end: 20190920
  12. METHOTREXATE [Suspect]
     Active Substance: METHOTREXATE
     Dosage: METHOTREXATE INJECTION 4G + 5% GLUCOSE 500 ML
     Route: 041
     Dates: start: 20190920, end: 20190920
  13. RITUXIMAB [Suspect]
     Active Substance: RITUXIMAB
     Indication: Burkitt^s lymphoma
     Dosage: RITUXIMAB INJECTION 100MG + 0.9% SODIUM CHLORIDE 100ML
     Route: 041
     Dates: start: 20190906, end: 20190906
  14. RITUXIMAB [Suspect]
     Active Substance: RITUXIMAB
     Dosage: RITUXIMAB INJECTION 500MG + 0.9% SODIUM CHLORIDE 100ML
     Route: 041
     Dates: start: 20190906, end: 20190906

REACTIONS (2)
  - Myelosuppression [Unknown]
  - Liver injury [Unknown]

NARRATIVE: CASE EVENT DATE: 20190925
